FAERS Safety Report 13940804 (Version 1)
Quarter: 2017Q3

REPORT INFORMATION
  Report Type: Spontaneous
  Country: US (occurrence: US)
  Receive Date: 20170906
  Receipt Date: 20170906
  Transmission Date: 20171127
  Serious: Yes (Life-Threatening, Other)
  Sender: FDA-Public Use
  Company Number: PHEH2017US028510

PATIENT
  Age: 41 Year
  Sex: Female

DRUGS (2)
  1. PREDNISONE TABLETS USP [Suspect]
     Active Substance: PREDNISONE
     Indication: PRODUCT USED FOR UNKNOWN INDICATION
     Route: 065
  2. DANAZOL. [Suspect]
     Active Substance: DANAZOL
     Indication: PRODUCT USED FOR UNKNOWN INDICATION
     Route: 065

REACTIONS (8)
  - Skin disorder [Unknown]
  - Feeling abnormal [Unknown]
  - Hair disorder [Unknown]
  - Platelet count decreased [Recovered/Resolved]
  - Mental disorder [Unknown]
  - Hepatic failure [Unknown]
  - Weight abnormal [Unknown]
  - Contusion [Unknown]
